FAERS Safety Report 17459116 (Version 1)
Quarter: 2020Q1

REPORT INFORMATION
  Report Type: Spontaneous
  Country: None (occurrence: US)
  Receive Date: 20200225
  Receipt Date: 20200225
  Transmission Date: 20200409
  Serious: No
  Sender: FDA-Public Use
  Company Number: US-AKRON, INC.-2080908

PATIENT
  Sex: Male

DRUGS (1)
  1. LATANOPROST. [Suspect]
     Active Substance: LATANOPROST

REACTIONS (1)
  - Ocular hyperaemia [None]
